FAERS Safety Report 12244696 (Version 1)
Quarter: 2016Q2

REPORT INFORMATION
  Report Type: Spontaneous
  Country: US (occurrence: None)
  Receive Date: 20160406
  Receipt Date: 20160406
  Transmission Date: 20160815
  Serious: No
  Sender: FDA-Public Use
  Company Number: None

PATIENT
  Age: 64 Year
  Sex: Female
  Weight: 68.04 kg

DRUGS (8)
  1. PROBIOTICS [Concomitant]
     Active Substance: PROBIOTICS NOS
  2. BABY ASPIRIN [Concomitant]
     Active Substance: ASPIRIN
  3. VITAMIN D3 [Concomitant]
     Active Substance: CHOLECALCIFEROL
  4. CRESTOR [Suspect]
     Active Substance: ROSUVASTATIN CALCIUM
     Indication: BLOOD CHOLESTEROL ABNORMAL
     Route: 048
     Dates: start: 20151102, end: 20160401
  5. RHINOCORT [Concomitant]
     Active Substance: BUDESONIDE
  6. FISH OIL [Concomitant]
     Active Substance: FISH OIL
  7. BENADRYL [Concomitant]
     Active Substance: DIPHENHYDRAMINE HYDROCHLORIDE
  8. VITAMIN B12 [Concomitant]
     Active Substance: CYANOCOBALAMIN

REACTIONS (8)
  - Paraesthesia [None]
  - Hot flush [None]
  - Hyperhidrosis [None]
  - Depression [None]
  - Quality of life decreased [None]
  - Anxiety [None]
  - Negative thoughts [None]
  - Protein urine present [None]

NARRATIVE: CASE EVENT DATE: 20160301
